FAERS Safety Report 17218924 (Version 1)
Quarter: 2019Q4

REPORT INFORMATION
  Report Type: Spontaneous
  Country: FR (occurrence: FR)
  Receive Date: 20191231
  Receipt Date: 20191231
  Transmission Date: 20200122
  Serious: Yes (Other)
  Sender: FDA-Public Use
  Company Number: NVSC2019FR081408

PATIENT
  Age: 30 Year
  Sex: Female

DRUGS (3)
  1. AZATHIOPRINE. [Suspect]
     Active Substance: AZATHIOPRINE
     Indication: AUTOIMMUNE PANCREATITIS
     Dosage: UNK
     Route: 065
  2. PREDNISOLONE. [Suspect]
     Active Substance: PREDNISOLONE
     Indication: AUTOIMMUNE PANCREATITIS
     Dosage: 40 MG
     Route: 065
  3. PREDNISOLONE. [Suspect]
     Active Substance: PREDNISOLONE
     Dosage: GRADUALLY TAPERED BY 5MG EVERY WEEK
     Route: 065

REACTIONS (3)
  - Drug dependence [Unknown]
  - Drug intolerance [Unknown]
  - Product use in unapproved indication [Unknown]
